FAERS Safety Report 25502606 (Version 1)
Quarter: 2025Q3

REPORT INFORMATION
  Report Type: Spontaneous
  Country: US (occurrence: US)
  Receive Date: 20250702
  Receipt Date: 20250702
  Transmission Date: 20251020
  Serious: No
  Sender: GLAXOSMITHKLINE
  Company Number: US-GSK-US2025AMR072972

PATIENT
  Sex: Female

DRUGS (1)
  1. BENLYSTA [Suspect]
     Active Substance: BELIMUMAB
     Indication: Nephropathy
     Dosage: 200 MG, WE
     Dates: start: 202503

REACTIONS (3)
  - Alopecia [Unknown]
  - Asthenia [Unknown]
  - Product dose omission issue [Unknown]
